FAERS Safety Report 14485152 (Version 8)
Quarter: 2018Q2

REPORT INFORMATION
  Report Type: Spontaneous
  Country: US (occurrence: US)
  Receive Date: 20180205
  Receipt Date: 20180619
  Transmission Date: 20180711
  Serious: Yes (Hospitalization)
  Sender: FDA-Public Use
  Company Number: US-PFIZER INC-2018032827

PATIENT
  Age: 87 Year
  Sex: Male
  Weight: 66 kg

DRUGS (15)
  1. LYRICA [Suspect]
     Active Substance: PREGABALIN
     Indication: NEUROPATHY PERIPHERAL
     Dosage: 1 CAPSULE, TWICE A DAY
  2. LYRICA [Suspect]
     Active Substance: PREGABALIN
     Dosage: 1 DF, 1X/DAY (1 TIME A DAY)
     Dates: end: 20180215
  3. HYDROCODONE/ACETAMINOPHEN [Concomitant]
     Active Substance: ACETAMINOPHEN\HYDROCODONE
     Indication: BACK PAIN
     Dosage: UNK MG, AS NEEDED [HYDROCODONE BITARTRATE: 5 MG/ PARACETAMOL: 325 MG]; (EVERY 4 HOURS)
     Route: 048
  4. LYRICA [Suspect]
     Active Substance: PREGABALIN
     Dosage: 1 DF, 2X/DAY (TAKE 1 2X A DAY)
     Dates: start: 20180118, end: 20180215
  5. LYRICA [Suspect]
     Active Substance: PREGABALIN
     Dosage: UNK
  6. HYDROCODONE [Concomitant]
     Active Substance: HYDROCODONE
     Indication: PAIN
     Dosage: UNK UNK, AS NEEDED (1-2 TABLETS DAILY)
  7. HYDROCODONE/ACETAMINOPHEN [Concomitant]
     Active Substance: ACETAMINOPHEN\HYDROCODONE
     Indication: NEUROPATHY PERIPHERAL
  8. LYRICA CR [Suspect]
     Active Substance: PREGABALIN
     Indication: NEUROPATHY PERIPHERAL
     Dosage: 2 DF, DAILY
  9. LYRICA CR [Suspect]
     Active Substance: PREGABALIN
     Indication: POLYNEUROPATHY
     Dosage: 1 DF, DAILY (TAKE ONE A DAY)
  10. ASPERCREME NOS [Concomitant]
     Active Substance: MENTHOL\TROLAMINE SALICYLATE
     Dosage: UNK
  11. LYRICA [Suspect]
     Active Substance: PREGABALIN
     Indication: POLYNEUROPATHY
     Dosage: 25 MG, DAILY
     Dates: start: 201801
  12. LYRICA [Suspect]
     Active Substance: PREGABALIN
     Indication: PAIN IN EXTREMITY
     Dosage: 1 DF, DAILY (DOWN TO 1 DAILY AND STAY ON IT FOR 2 WEEKS)
  13. HYDROCODONE [Concomitant]
     Active Substance: HYDROCODONE
     Dosage: UNK, 1X/DAY (TAKE 1 OR A 1/2  TABLET DURING THE NIGHT)
  14. HYDROCODONE [Concomitant]
     Active Substance: HYDROCODONE
     Dosage: UNK
     Dates: start: 20170820
  15. LYRICA [Suspect]
     Active Substance: PREGABALIN
     Indication: PAIN IN EXTREMITY
     Dosage: 50 MG, DAILY [2 CAPSULES A DAY]
     Dates: start: 20180127

REACTIONS (21)
  - Somnolence [Not Recovered/Not Resolved]
  - Intraocular pressure increased [Not Recovered/Not Resolved]
  - Thinking abnormal [Unknown]
  - Visual impairment [Unknown]
  - Headache [Unknown]
  - Vision blurred [Unknown]
  - Malaise [Unknown]
  - Sleep disorder [Unknown]
  - Fatigue [Unknown]
  - Confusional state [Unknown]
  - Feeling abnormal [Not Recovered/Not Resolved]
  - Micturition urgency [Recovered/Resolved]
  - Memory impairment [Unknown]
  - Pain [Unknown]
  - Dizziness [Not Recovered/Not Resolved]
  - Cognitive disorder [Unknown]
  - Amnesia [Not Recovered/Not Resolved]
  - Drug ineffective [Unknown]
  - Drug prescribing error [Unknown]
  - Gait disturbance [Unknown]
  - Disturbance in attention [Unknown]

NARRATIVE: CASE EVENT DATE: 20180116
